FAERS Safety Report 6368881-2 (Version None)
Quarter: 2009Q3

REPORT INFORMATION
  Report Type: 
  Country: None (occurrence: None)
  Receive Date: 20090922
  Receipt Date: 20090915
  Transmission Date: 20100115
  Serious: Yes (Other)
  Sender: FDA-Public Use
  Company Number: US-PFIZER INC-2009248957

PATIENT
  Sex: Female

DRUGS (6)
  1. GABAPENTIN [Suspect]
     Indication: TRIGEMINAL NEURALGIA
     Dosage: UNK MG, UNK
  2. ZIPRASIDONE HCL [Suspect]
     Indication: BIPOLAR DISORDER
  3. MIRTAZAPINE [Suspect]
     Indication: BIPOLAR DISORDER
  4. CITALOPRAM [Suspect]
     Indication: BIPOLAR DISORDER
  5. TOPIRAMATE [Suspect]
     Indication: TRIGEMINAL NEURALGIA
  6. METHADONE [Suspect]
     Indication: TRIGEMINAL NEURALGIA

REACTIONS (3)
  - ATAXIA [None]
  - BEHCET'S SYNDROME [None]
  - MYOCLONUS [None]
